FAERS Safety Report 8329568-X (Version None)
Quarter: 2012Q2

REPORT INFORMATION
  Report Type: 
  Country: None (occurrence: None)
  Receive Date: 20120502
  Receipt Date: 20120426
  Transmission Date: 20120825
  Serious: Yes (Hospitalization, Other)
  Sender: FDA-Public Use
  Company Number: US-BAYER-2012-042230

PATIENT
  Age: 20 Year
  Sex: Female
  Weight: 72.562 kg

DRUGS (7)
  1. DROSPIRENONE AND ETHINYL ESTRADIOL [Suspect]
  2. ZOFRAN [Concomitant]
     Indication: NAUSEA
  3. YAZ [Suspect]
     Dosage: UNK
     Dates: start: 20110819, end: 20110929
  4. RELAFEN [Concomitant]
     Indication: MUSCULOSKELETAL CHEST PAIN
     Dosage: UNK
     Dates: start: 20110926
  5. FLEXERIL [Concomitant]
     Indication: MUSCULOSKELETAL CHEST PAIN
  6. TORADOL [Concomitant]
     Indication: MUSCULOSKELETAL CHEST PAIN
  7. MORPHINE [Concomitant]
     Indication: MUSCULOSKELETAL CHEST PAIN

REACTIONS (2)
  - PULMONARY INFARCTION [None]
  - PULMONARY EMBOLISM [None]
